FAERS Safety Report 9492033 (Version 1)
Quarter: 2013Q3

REPORT INFORMATION
  Report Type: Spontaneous
  Country: BR (occurrence: BR)
  Receive Date: 20130830
  Receipt Date: 20130830
  Transmission Date: 20140515
  Serious: Yes (Other)
  Sender: FDA-Public Use
  Company Number: BR-SANOFI-AVENTIS-2013SA086134

PATIENT
  Age: 61 Year
  Sex: Female
  Weight: 62 kg

DRUGS (9)
  1. APIDRA [Suspect]
     Indication: TYPE 2 DIABETES MELLITUS
     Route: 058
     Dates: start: 201302
  2. CLIKSTAR [Concomitant]
     Indication: DEVICE THERAPY
  3. INSULIN INJECTION, ISOPHANE [Concomitant]
     Indication: TYPE 2 DIABETES MELLITUS
     Route: 058
  4. ALPRAZOLAM [Concomitant]
     Indication: ANXIETY
     Dosage: STRENGTH: 0.5 MG
     Route: 048
  5. SERTRALINE [Concomitant]
     Indication: CONFUSIONAL STATE
     Dosage: STRENGTH: 50 MG
     Route: 048
  6. SIMVASTATIN [Concomitant]
     Indication: BLOOD CHOLESTEROL
     Dosage: STRENGTH: 40 MG
     Route: 048
  7. HYDROCHLOROTHIAZIDE [Concomitant]
     Indication: HYPERTENSION
     Dosage: STRENGTH: 25 MG
     Route: 048
  8. LOSARTAN [Concomitant]
     Indication: HYPERTENSION
     Dosage: 2 TABLETS IN MORNING AND 1 AT NIGHT
     Route: 048
  9. PURAN T4 [Concomitant]
     Indication: THYROID DISORDER
     Dosage: STRENGTH: 50 MG
     Route: 048

REACTIONS (3)
  - Hyperglycaemic seizure [Unknown]
  - Hyperglycaemia [Not Recovered/Not Resolved]
  - Malaise [Not Recovered/Not Resolved]
